FAERS Safety Report 20559191 (Version 1)
Quarter: 2022Q1

REPORT INFORMATION
  Report Type: Spontaneous
  Country: JP (occurrence: JP)
  Receive Date: 20220307
  Receipt Date: 20220307
  Transmission Date: 20220424
  Serious: Yes (Other)
  Sender: FDA-Public Use
  Company Number: JP-TEVA-2022-JP-2015106

PATIENT
  Age: 78 Year
  Sex: Female

DRUGS (1)
  1. AZILECT [Suspect]
     Active Substance: RASAGILINE MESYLATE
     Indication: Parkinson^s disease
     Dosage: .5 MILLIGRAM DAILY;
     Route: 048
     Dates: start: 20211030, end: 20220122

REACTIONS (3)
  - Hallucination, visual [Unknown]
  - Condition aggravated [Unknown]
  - Agitation [Unknown]
